FAERS Safety Report 6761708-6 (Version None)
Quarter: 2010Q2

REPORT INFORMATION
  Report Type: 
  Country: None (occurrence: None)
  Receive Date: 20100609
  Receipt Date: 20100531
  Transmission Date: 20101027
  Serious: Yes (Hospitalization)
  Sender: FDA-Public Use
  Company Number: DE-WYE-G06203010

PATIENT
  Age: 24 Year
  Sex: Female
  Weight: 83 kg

DRUGS (2)
  1. TREVILOR RETARD [Suspect]
     Indication: BORDERLINE PERSONALITY DISORDER
     Route: 048
     Dates: start: 20050101
  2. DULCOLAX [Suspect]
     Indication: CONSTIPATION
     Route: 048
     Dates: start: 20070101, end: 20090507

REACTIONS (1)
  - FAECALOMA [None]
